FAERS Safety Report 14570743 (Version 1)
Quarter: 2018Q1

REPORT INFORMATION
  Report Type: Spontaneous
  Country: CA (occurrence: CA)
  Receive Date: 20180226
  Receipt Date: 20180226
  Transmission Date: 20180509
  Serious: Yes (Hospitalization, Other)
  Sender: FDA-Public Use
  Company Number: CA-ORION CORPORATION ORION PHARMA-TREX2018-0535

PATIENT
  Age: 54 Year
  Sex: Female

DRUGS (11)
  1. APO-PREDNISONE [Suspect]
     Active Substance: PREDNISONE
     Indication: PAIN
     Route: 065
  2. HYDROMORPH CONTIN [Concomitant]
     Active Substance: HYDROMORPHONE
     Route: 065
  3. ACTEMRA [Suspect]
     Active Substance: TOCILIZUMAB
     Indication: RHEUMATOID ARTHRITIS
     Route: 065
     Dates: start: 2013
  4. PLAQUENIL [Suspect]
     Active Substance: HYDROXYCHLOROQUINE SULFATE
     Indication: PAIN
     Route: 065
  5. ENBREL [Suspect]
     Active Substance: ETANERCEPT
     Indication: RHEUMATOID ARTHRITIS
     Route: 058
     Dates: start: 200904, end: 200909
  6. METHOTREXATE (TRADE NAME UNKNOWN) [Suspect]
     Active Substance: METHOTREXATE
     Indication: RHEUMATOID ARTHRITIS
     Route: 065
     Dates: end: 201003
  7. ARAVA [Suspect]
     Active Substance: LEFLUNOMIDE
     Indication: RHEUMATOID ARTHRITIS
     Route: 065
     Dates: end: 201003
  8. DILAUDID [Concomitant]
     Active Substance: HYDROMORPHONE HYDROCHLORIDE
     Route: 065
     Dates: start: 2009
  9. CELEBREX [Suspect]
     Active Substance: CELECOXIB
     Route: 065
  10. LYRICA [Concomitant]
     Active Substance: PREGABALIN
     Route: 065
  11. FUROSEMIDE. [Concomitant]
     Active Substance: FUROSEMIDE
     Route: 065

REACTIONS (17)
  - Fibromyalgia [Recovered/Resolved]
  - Peripheral swelling [Recovered/Resolved]
  - Psychiatric symptom [Recovered/Resolved]
  - Deformity [Recovered/Resolved]
  - Rib fracture [Recovered/Resolved]
  - Spinal deformity [Recovered/Resolved]
  - Encephalitis brain stem [Recovered/Resolved]
  - Immunosuppression [Recovered/Resolved]
  - Cystitis [Recovered/Resolved]
  - Amnesia [Recovered/Resolved]
  - Loss of personal independence in daily activities [Recovered/Resolved]
  - Insomnia [Recovered/Resolved]
  - Joint destruction [Recovered/Resolved]
  - Sepsis [Recovered/Resolved]
  - Encephalitis [Recovered/Resolved]
  - Seizure [Recovered/Resolved]
  - Depressed mood [Recovered/Resolved]

NARRATIVE: CASE EVENT DATE: 2010
